FAERS Safety Report 7734686-0 (Version None)
Quarter: 2011Q3

REPORT INFORMATION
  Report Type: 
  Country: None (occurrence: None)
  Receive Date: 20110907
  Receipt Date: 20110826
  Transmission Date: 20111222
  Serious: No
  Sender: FDA-Public Use
  Company Number: KR-ELI_LILLY_AND_COMPANY-KR201101005113

PATIENT
  Age: 38 Year
  Sex: Female

DRUGS (3)
  1. CLONAZEPAM [Concomitant]
     Indication: AGGRESSION
     Dosage: 0.5 MG, UNK
     Dates: start: 20100601, end: 20101001
  2. ZYPREXA [Suspect]
     Indication: MENTAL DISORDER
     Dosage: 15 MG, DAILY (1/D)
     Route: 048
     Dates: start: 20090101, end: 20100201
  3. CARBAMAZEPINE [Concomitant]
     Indication: AGGRESSION

REACTIONS (1)
  - MATERNAL EXPOSURE DURING PREGNANCY [None]
